FAERS Safety Report 21359440 (Version 1)
Quarter: 2022Q3

REPORT INFORMATION
  Report Type: Spontaneous
  Country: US (occurrence: None)
  Receive Date: 20220920
  Receipt Date: 20220920
  Transmission Date: 20221027
  Serious: Yes (Disabling, Other)
  Sender: FDA-Public Use
  Company Number: None

PATIENT
  Age: 33 Year
  Sex: Male
  Weight: 76.5 kg

DRUGS (5)
  1. ABILIFY [Suspect]
     Active Substance: ARIPIPRAZOLE
     Indication: Obsessive-compulsive disorder
     Dosage: FREQUENCY : AT BEDTIME;?
     Route: 048
     Dates: start: 19980115, end: 20210902
  2. ABILIFY [Suspect]
     Active Substance: ARIPIPRAZOLE
     Indication: Anxiety
  3. ABILIFY [Suspect]
     Active Substance: ARIPIPRAZOLE
     Indication: Depression
  4. ZOLOFT [Suspect]
     Active Substance: SERTRALINE HYDROCHLORIDE
  5. FLUVOXAMINE [Suspect]
     Active Substance: FLUVOXAMINE

REACTIONS (11)
  - Sexual dysfunction [None]
  - Mental disorder [None]
  - Anhedonia [None]
  - Emotional disorder [None]
  - Apathy [None]
  - Apathy [None]
  - Fatigue [None]
  - Nervous system disorder [None]
  - Ageusia [None]
  - Anosmia [None]
  - Loss of personal independence in daily activities [None]

NARRATIVE: CASE EVENT DATE: 20210526
